FAERS Safety Report 15314633 (Version 1)
Quarter: 2018Q3

REPORT INFORMATION
  Report Type: Spontaneous
  Country: US (occurrence: US)
  Receive Date: 20180824
  Receipt Date: 20180824
  Transmission Date: 20181010
  Serious: Yes (Other)
  Sender: FDA-Public Use
  Company Number: US-BAYER-2018-156721

PATIENT

DRUGS (2)
  1. BAYER ASPIRIN [Interacting]
     Active Substance: ASPIRIN
     Dosage: UNK
  2. ALEVE [Suspect]
     Active Substance: NAPROXEN SODIUM
     Indication: PAIN
     Dosage: UNK

REACTIONS (9)
  - Gastric ulcer [Recovered/Resolved]
  - Labelled drug-drug interaction medication error [None]
  - Contraindicated product administered [None]
  - Haematemesis [Recovered/Resolved]
  - Malaise [Unknown]
  - Abdominal discomfort [Recovered/Resolved]
  - Abdominal pain upper [Recovered/Resolved]
  - Adverse event [Recovered/Resolved]
  - Gastric haemorrhage [Recovered/Resolved]
